FAERS Safety Report 23738563 (Version 3)
Quarter: 2024Q2

REPORT INFORMATION
  Report Type: Report from Study
  Country: US (occurrence: US)
  Receive Date: 20240412
  Receipt Date: 20240610
  Transmission Date: 20240716
  Serious: No
  Sender: FDA-Public Use
  Company Number: US-AstraZeneca-CH-00601226A

PATIENT
  Sex: Female

DRUGS (1)
  1. SOLIRIS [Suspect]
     Active Substance: ECULIZUMAB
     Indication: Product used for unknown indication
     Dosage: UNK
     Route: 065

REACTIONS (11)
  - Therapeutic product effect incomplete [Unknown]
  - Asthenia [Unknown]
  - Dyspnoea [Unknown]
  - Pain [Unknown]
  - Burning sensation [Unknown]
  - Headache [Unknown]
  - Illness [Unknown]
  - Pain in extremity [Unknown]
  - Spinal pain [Unknown]
  - Musculoskeletal stiffness [Unknown]
  - Dysstasia [Unknown]
